FAERS Safety Report 8426784-3 (Version None)
Quarter: 2012Q2

REPORT INFORMATION
  Report Type: 
  Country: None (occurrence: None)
  Receive Date: 20120611
  Receipt Date: 20120608
  Transmission Date: 20120825
  Serious: Yes (Other)
  Sender: FDA-Public Use
  Company Number: PHHY2012ES049205

PATIENT

DRUGS (1)
  1. TASIGNA [Suspect]

REACTIONS (1)
  - ACUTE MYOCARDIAL INFARCTION [None]
